FAERS Safety Report 9450275 (Version 1)
Quarter: 2013Q3

REPORT INFORMATION
  Report Type: Report from Study
  Country: DE (occurrence: DE)
  Receive Date: 20130809
  Receipt Date: 20130809
  Transmission Date: 20140515
  Serious: Yes (Hospitalization)
  Sender: FDA-Public Use
  Company Number: DE-ABBOTT-13P-062-1128567-00

PATIENT
  Age: 55 Year
  Sex: Female

DRUGS (3)
  1. HUMIRA [Suspect]
     Indication: RHEUMATOID ARTHRITIS
     Route: 058
     Dates: start: 200908, end: 201111
  2. HUMIRA [Suspect]
     Route: 058
     Dates: start: 201205
  3. METHOTREXATE [Concomitant]
     Indication: RHEUMATOID ARTHRITIS

REACTIONS (4)
  - Synovial cyst [Recovered/Resolved]
  - Varicose vein ruptured [Recovered/Resolved]
  - Haemorrhage [Recovered/Resolved]
  - Muscle rupture [Recovered/Resolved]
